FAERS Safety Report 8845863 (Version 1)
Quarter: 2012Q4

REPORT INFORMATION
  Report Type: Report from Study
  Country: US (occurrence: US)
  Receive Date: 20121017
  Receipt Date: 20121017
  Transmission Date: 20130627
  Serious: Yes (Hospitalization, Other)
  Sender: FDA-Public Use
  Company Number: US-ABBOTT-12P-163-0994254-00

PATIENT
  Sex: Female
  Weight: 68.1 kg

DRUGS (7)
  1. LUPRON DEPOT [Suspect]
     Indication: UTERINE LEIOMYOMA
     Route: 030
     Dates: start: 20081010, end: 20101010
  2. LUPRON DEPOT [Suspect]
     Indication: MENSTRUAL CYCLE MANAGEMENT
  3. UNKNOWN MEDICATIONS [Suspect]
     Indication: PRODUCT USED FOR UNKNOWN INDICATION
  4. VALIUM [Concomitant]
     Indication: INSOMNIA
     Route: 048
  5. SIMVASTATIN [Concomitant]
     Indication: PRODUCT USED FOR UNKNOWN INDICATION
     Dosage: 40mg daily
     Route: 048
  6. UNKNOWN BIPOLAR MEDICATIONS [Concomitant]
     Indication: PRODUCT USED FOR UNKNOWN INDICATION
  7. TRAMADOL [Concomitant]
     Indication: PAIN
     Dosage: 2 tablets every morning
     Route: 048

REACTIONS (8)
  - Osteopenia [Not Recovered/Not Resolved]
  - Osteoarthritis [Unknown]
  - Osteoarthritis [Unknown]
  - Bipolar disorder [Unknown]
  - Paralysis [Recovered/Resolved]
  - Bone pain [Unknown]
  - Bone pain [Unknown]
  - Arthralgia [Unknown]
